FAERS Safety Report 24286065 (Version 3)
Quarter: 2024Q4

REPORT INFORMATION
  Report Type: Spontaneous
  Country: US (occurrence: US)
  Receive Date: 20240905
  Receipt Date: 20241003
  Transmission Date: 20250115
  Serious: No
  Sender: SANOFI AVENTIS
  Company Number: US-SA-2024SA254510

PATIENT
  Age: 39 Year
  Sex: Female

DRUGS (1)
  1. DUPIXENT [Suspect]
     Active Substance: DUPILUMAB
     Indication: Dermatitis atopic
     Dosage: 300 MG, QOW
     Route: 058

REACTIONS (7)
  - COVID-19 [Recovering/Resolving]
  - Anal fissure [Unknown]
  - Cough [Unknown]
  - Pruritus [Unknown]
  - Dermatitis atopic [Recovering/Resolving]
  - Injection site pain [Recovering/Resolving]
  - Therapeutic response unexpected [Unknown]
